FAERS Safety Report 22053644 (Version 1)
Quarter: 2023Q1

REPORT INFORMATION
  Report Type: Spontaneous
  Country: BR (occurrence: BR)
  Receive Date: 20230302
  Receipt Date: 20230302
  Transmission Date: 20230418
  Serious: Yes (Death, Other)
  Sender: FDA-Public Use
  Company Number: BR-JNJFOC-20230216131

PATIENT
  Age: 6 Decade

DRUGS (17)
  1. VELCADE [Suspect]
     Active Substance: BORTEZOMIB
     Indication: Plasma cell myeloma
     Dosage: FIRST LINE THERAPY
     Route: 065
     Dates: start: 20180918, end: 20190206
  2. VELCADE [Suspect]
     Active Substance: BORTEZOMIB
     Dosage: THIRD LINE THERAPY
     Route: 042
     Dates: start: 20190528, end: 20190723
  3. DARATUMUMAB [Suspect]
     Active Substance: DARATUMUMAB
     Indication: Plasma cell myeloma
     Dosage: FOURTH LINE THERAPY
     Route: 065
     Dates: start: 20191011, end: 20211109
  4. CYCLOPHOSPHAMIDE [Suspect]
     Active Substance: CYCLOPHOSPHAMIDE
     Indication: Plasma cell myeloma
     Dosage: FIRST LINE THERAPY
     Route: 065
     Dates: start: 20180918, end: 20190206
  5. CYCLOPHOSPHAMIDE [Suspect]
     Active Substance: CYCLOPHOSPHAMIDE
     Dosage: THIRD LINE THERAPY
     Route: 065
     Dates: start: 20190528, end: 20190723
  6. DEXAMETHASONE [Suspect]
     Active Substance: DEXAMETHASONE
     Indication: Plasma cell myeloma
     Dosage: FIRST LINE THERAPY
     Route: 065
     Dates: start: 20180918, end: 20190206
  7. DEXAMETHASONE [Suspect]
     Active Substance: DEXAMETHASONE
     Dosage: THIRD LINE THERAPY
     Route: 065
     Dates: start: 20190528, end: 20190723
  8. DEXAMETHASONE [Suspect]
     Active Substance: DEXAMETHASONE
     Dosage: FOURTH LINE TREATMENT
     Route: 065
     Dates: start: 20191011, end: 20211109
  9. DEXAMETHASONE [Suspect]
     Active Substance: DEXAMETHASONE
     Dosage: SIXTH LINE TREATMENT
     Route: 065
     Dates: start: 20220830
  10. DEXAMETHASONE [Suspect]
     Active Substance: DEXAMETHASONE
     Route: 065
     Dates: start: 20230103, end: 20230117
  11. MELPHALAN [Suspect]
     Active Substance: MELPHALAN
     Indication: Plasma cell myeloma
     Dosage: SECOND LINE THERAPY
     Route: 065
     Dates: start: 20190221, end: 20190222
  12. LENALIDOMIDE [Suspect]
     Active Substance: LENALIDOMIDE
     Indication: Plasma cell myeloma
     Dosage: FOURTH LINE THERAPY
     Route: 065
     Dates: start: 20191011, end: 20211109
  13. LENALIDOMIDE [Suspect]
     Active Substance: LENALIDOMIDE
     Dosage: FIFTH LINE TREATMENT
     Route: 065
     Dates: start: 20211116, end: 20220826
  14. CARFILZOMIB [Suspect]
     Active Substance: CARFILZOMIB
     Indication: Plasma cell myeloma
     Dosage: SIXTH LINE TREATMENT
     Route: 065
     Dates: start: 20220830
  15. CARFILZOMIB [Suspect]
     Active Substance: CARFILZOMIB
     Route: 065
     Dates: start: 20230103, end: 20230117
  16. ISATUXIMAB [Suspect]
     Active Substance: ISATUXIMAB
     Indication: Plasma cell myeloma
     Dosage: SIXTH LINE TREATMENT
     Route: 065
     Dates: start: 20220830
  17. ISATUXIMAB [Suspect]
     Active Substance: ISATUXIMAB
     Route: 065
     Dates: start: 20230103, end: 20230117

REACTIONS (2)
  - Death [Fatal]
  - Plasma cell myeloma [Unknown]
